FAERS Safety Report 6815742-8 (Version None)
Quarter: 2010Q3

REPORT INFORMATION
  Report Type: 
  Country: None (occurrence: None)
  Receive Date: 20100702
  Receipt Date: 20100511
  Transmission Date: 20110219
  Serious: Yes (Hospitalization)
  Sender: FDA-Public Use
  Company Number: CH-ROCHE-702449

PATIENT
  Age: 90 Year
  Sex: Female
  Weight: 71 kg

DRUGS (2)
  1. ROCEPHIN [Suspect]
     Route: 041
     Dates: start: 20100402, end: 20100407
  2. CLAMOXYL [Suspect]
     Route: 042
     Dates: start: 20100402, end: 20100407

REACTIONS (1)
  - RENAL FAILURE ACUTE [None]
